FAERS Safety Report 21969375 (Version 1)
Quarter: 2023Q1

REPORT INFORMATION
  Report Type: Spontaneous
  Country: US (occurrence: US)
  Receive Date: 20230208
  Receipt Date: 20230208
  Transmission Date: 20230418
  Serious: No
  Sender: FDA-Public Use
  Company Number: US-GALDERMA-US2022015853

PATIENT

DRUGS (1)
  1. EPSOLAY [Suspect]
     Active Substance: BENZOYL PEROXIDE
     Indication: Product used for unknown indication
     Dosage: 1 DOSAGE FORM
     Route: 061

REACTIONS (5)
  - Dry skin [Unknown]
  - Skin irritation [Unknown]
  - Skin burning sensation [Unknown]
  - Off label use [Recovered/Resolved]
  - Intentional underdose [Recovered/Resolved]
